FAERS Safety Report 5802000-3 (Version None)
Quarter: 2008Q3

REPORT INFORMATION
  Report Type: 
  Country: None (occurrence: None)
  Receive Date: 20080702
  Receipt Date: 20080523
  Transmission Date: 20090109
  Serious: Yes (Other)
  Sender: FDA-Public Use
  Company Number: ADE# 08-097

PATIENT

DRUGS (1)
  1. PHENYTOIN SODIUM [Suspect]
     Indication: CONVULSION
     Dosage: 200MG TWICE DAILY

REACTIONS (1)
  - LABORATORY TEST ABNORMAL [None]
